FAERS Safety Report 18623660 (Version 2)
Quarter: 2021Q2

REPORT INFORMATION
  Report Type: Report from Study
  Country: US (occurrence: US)
  Receive Date: 20201216
  Receipt Date: 20210401
  Transmission Date: 20210717
  Serious: Yes (Other)
  Sender: FDA-Public Use
  Company Number: US-009507513-2012USA002960

PATIENT
  Sex: Male
  Weight: 106.58 kg

DRUGS (1)
  1. KEYTRUDA [Suspect]
     Active Substance: PEMBROLIZUMAB
     Indication: NEOPLASM MALIGNANT
     Dosage: 1 DOSE/ Q3W
     Route: 042
     Dates: start: 20201029

REACTIONS (15)
  - Abdominal discomfort [Unknown]
  - Muscular weakness [Unknown]
  - Renal function test abnormal [Not Recovered/Not Resolved]
  - Insomnia [Unknown]
  - Facial paralysis [Unknown]
  - Cerebrovascular accident [Unknown]
  - Depression [Not Recovered/Not Resolved]
  - Fatigue [Unknown]
  - Neoplasm skin [Unknown]
  - Restlessness [Unknown]
  - Dizziness [Unknown]
  - Motor dysfunction [Unknown]
  - Hair growth abnormal [Unknown]
  - Rash [Unknown]
  - Diarrhoea [Unknown]

NARRATIVE: CASE EVENT DATE: 2020
